FAERS Safety Report 6486755-3 (Version None)
Quarter: 2009Q4

REPORT INFORMATION
  Report Type: 
  Country: None (occurrence: None)
  Receive Date: 20091210
  Receipt Date: 20091203
  Transmission Date: 20100525
  Serious: Yes (Hospitalization)
  Sender: FDA-Public Use
  Company Number: US-ELI_LILLY_AND_COMPANY-US200912001111

PATIENT
  Sex: Female

DRUGS (2)
  1. HUMALOG [Suspect]
     Indication: DIABETES MELLITUS
     Dosage: 5 U, 3/D
     Dates: start: 20080601
  2. LANTUS [Concomitant]
     Dosage: UNK, EACH EVENING
     Dates: start: 20070101

REACTIONS (3)
  - PERIARTHRITIS [None]
  - SHOULDER ARTHROPLASTY [None]
  - UPPER LIMB FRACTURE [None]
